FAERS Safety Report 23611751 (Version 2)
Quarter: 2024Q1

REPORT INFORMATION
  Report Type: Spontaneous
  Country: US (occurrence: US)
  Receive Date: 20240308
  Receipt Date: 20240314
  Transmission Date: 20240410
  Serious: No
  Sender: FDA-Public Use
  Company Number: US-ABBVIE-5667540

PATIENT
  Sex: Female

DRUGS (1)
  1. QULIPTA [Suspect]
     Active Substance: ATOGEPANT
     Indication: Migraine
     Dosage: 1 TABLET?FORM STRENGTH: 10 MILLIGRAM
     Route: 048
     Dates: start: 202209, end: 202302

REACTIONS (12)
  - Food allergy [Recovering/Resolving]
  - Gastrointestinal inflammation [Recovered/Resolved]
  - Arthropod bite [Not Recovered/Not Resolved]
  - Nausea [Recovered/Resolved]
  - Illness [Unknown]
  - Diverticulitis [Recovered/Resolved]
  - Constipation [Recovered/Resolved]
  - Abdominal pain upper [Recovered/Resolved]
  - Diarrhoea [Recovered/Resolved]
  - Abdominal distension [Recovered/Resolved]
  - Vomiting [Recovered/Resolved]
  - Gastrointestinal pain [Recovered/Resolved]

NARRATIVE: CASE EVENT DATE: 20220101
